FAERS Safety Report 5753928-4 (Version None)
Quarter: 2008Q2

REPORT INFORMATION
  Report Type: 
  Country: None (occurrence: None)
  Receive Date: 20080527
  Receipt Date: 20080512
  Transmission Date: 20081010
  Serious: Yes (Other)
  Sender: FDA-Public Use
  Company Number: 2008AP001168

PATIENT
  Age: 9 Month

DRUGS (2)
  1. FLUOXETINE HYDROHLORIDE [Suspect]
  2. SULFONAMIDES (SULFONAMIDES) [Concomitant]

REACTIONS (2)
  - DRUG DISPENSING ERROR [None]
  - TOXIC EPIDERMAL NECROLYSIS [None]
